FAERS Safety Report 7281360-3 (Version None)
Quarter: 2011Q1

REPORT INFORMATION
  Report Type: 
  Country: None (occurrence: None)
  Receive Date: 20110208
  Receipt Date: 20110128
  Transmission Date: 20110831
  Serious: Yes (Hospitalization)
  Sender: FDA-Public Use
  Company Number: US-JNJFOC-20110107914

PATIENT
  Sex: Male
  Weight: 55.1 kg

DRUGS (5)
  1. METHOTREXATE [Concomitant]
  2. REMICADE [Suspect]
     Indication: DRUG THERAPY
     Route: 042
  3. REMICADE [Suspect]
     Route: 042
  4. REMICADE [Suspect]
     Indication: CROHN'S DISEASE
     Route: 042
  5. REMICADE [Suspect]
     Route: 042

REACTIONS (2)
  - INFECTION [None]
  - CROHN'S DISEASE [None]
